FAERS Safety Report 14882940 (Version 2)
Quarter: 2019Q2

REPORT INFORMATION
  Report Type: Spontaneous
  Country: US (occurrence: US)
  Receive Date: 20180511
  Receipt Date: 20190422
  Transmission Date: 20190711
  Serious: Yes (Other)
  Sender: FDA-Public Use
  Company Number: US-ASTRAZENECA-2018SE62830

PATIENT
  Sex: Male
  Weight: 82.1 kg

DRUGS (23)
  1. DOXEPIN [Concomitant]
     Active Substance: DOXEPIN
  2. BENZONATATE. [Concomitant]
     Active Substance: BENZONATATE
  3. PROAIR HFA [Concomitant]
     Active Substance: ALBUTEROL SULFATE
  4. AMOXICILLIN. [Concomitant]
     Active Substance: AMOXICILLIN
  5. CLONIDINE. [Concomitant]
     Active Substance: CLONIDINE
  6. HYDROCHLOROTHIAZIDE. [Concomitant]
     Active Substance: HYDROCHLOROTHIAZIDE
  7. CITALOPRAM [Concomitant]
     Active Substance: CITALOPRAM HYDROBROMIDE
  8. HYDROXYZINE [Concomitant]
     Active Substance: HYDROXYZINE HYDROCHLORIDE
  9. COLCHICINE. [Concomitant]
     Active Substance: COLCHICINE
  10. IBUPROFEN. [Concomitant]
     Active Substance: IBUPROFEN
  11. PRILOSEC OTC [Suspect]
     Active Substance: OMEPRAZOLE MAGNESIUM
     Indication: GASTROOESOPHAGEAL REFLUX DISEASE
     Route: 048
     Dates: start: 20071030
  12. METOPROLOL. [Concomitant]
     Active Substance: METOPROLOL
  13. ALLOPURINOL. [Concomitant]
     Active Substance: ALLOPURINOL
  14. LISINOPRIL. [Concomitant]
     Active Substance: LISINOPRIL
  15. MOBIC [Concomitant]
     Active Substance: MELOXICAM
  16. ATENOLOL. [Concomitant]
     Active Substance: ATENOLOL
  17. CIMETIDINE [Concomitant]
     Active Substance: CIMETIDINE
  18. COREG [Concomitant]
     Active Substance: CARVEDILOL
  19. PRILOSEC [Suspect]
     Active Substance: OMEPRAZOLE MAGNESIUM
     Dosage: 20 MG DAILY
     Route: 048
     Dates: start: 2006, end: 201603
  20. PRILOSEC OTC [Suspect]
     Active Substance: OMEPRAZOLE MAGNESIUM
     Indication: GASTROOESOPHAGEAL REFLUX DISEASE
     Dosage: 20 MG DAILY
     Route: 048
     Dates: start: 2006, end: 201603
  21. FUROSEMIDE. [Concomitant]
     Active Substance: FUROSEMIDE
  22. HYDROCODONE BITARTRATE AND ACETAMINOPHEN [Concomitant]
     Active Substance: ACETAMINOPHEN\HYDROCODONE BITARTRATE
  23. PREDNISONE. [Concomitant]
     Active Substance: PREDNISONE

REACTIONS (3)
  - Congenital cystic kidney disease [Unknown]
  - Chronic kidney disease [Unknown]
  - Malignant renal hypertension [Unknown]
